FAERS Safety Report 6180518-4 (Version None)
Quarter: 2009Q2

REPORT INFORMATION
  Report Type: 
  Country: None (occurrence: None)
  Receive Date: 20090504
  Receipt Date: 20090504
  Transmission Date: 20091009
  Serious: Yes (Other)
  Sender: FDA-Public Use
  Company Number: None

PATIENT
  Age: 31 Year
  Sex: Female

DRUGS (2)
  1. APIDRA [Suspect]
     Indication: TYPE 1 DIABETES MELLITUS
     Dosage: 4-8 UNITS WITH MEALS BID SQ
     Route: 058
  2. LANTUS [Suspect]
     Dosage: 25 UNITS QAM SQ

REACTIONS (6)
  - DRUG LABEL CONFUSION [None]
  - HYPOGLYCAEMIA [None]
  - INCORRECT DOSE ADMINISTERED [None]
  - MEDICATION ERROR [None]
  - PRODUCT OUTER PACKAGING ISSUE [None]
  - PRODUCT QUALITY ISSUE [None]
